FAERS Safety Report 9159621 (Version 1)
Quarter: 2013Q1

REPORT INFORMATION
  Report Type: Spontaneous
  Country: US (occurrence: US)
  Receive Date: 20130313
  Receipt Date: 20130313
  Transmission Date: 20140127
  Serious: Yes (Other)
  Sender: FDA-Public Use
  Company Number: US-PFIZER INC-2013081864

PATIENT
  Age: 58 Year
  Sex: Female

DRUGS (2)
  1. XALKORI [Suspect]
     Indication: LUNG NEOPLASM MALIGNANT
     Dosage: 250 MG, 2X/DAY
     Route: 048
     Dates: start: 201301
  2. CITALOPRAM [Concomitant]
     Dosage: 40 MG, 1X/DAY

REACTIONS (4)
  - Fatigue [Unknown]
  - Visual impairment [Unknown]
  - Weight decreased [Unknown]
  - Depression [Unknown]
